FAERS Safety Report 9609150 (Version 1)
Quarter: 2013Q4

REPORT INFORMATION
  Report Type: Spontaneous
  Country: US (occurrence: US)
  Receive Date: 20131009
  Receipt Date: 20131009
  Transmission Date: 20140711
  Serious: No
  Sender: FDA-Public Use
  Company Number: US-PURDUE-USA-2012-0094582

PATIENT
  Age: 53 Year
  Sex: Female

DRUGS (5)
  1. BUTRANS [Suspect]
     Indication: BACK PAIN
     Dosage: 10 MCG, 1/WEEK
     Route: 062
     Dates: start: 20121012
  2. TOPAMAX [Concomitant]
     Indication: MIGRAINE
     Dosage: 150 MG, BID
     Route: 048
  3. BACLOFEN [Concomitant]
     Indication: MUSCLE SPASMS
     Dosage: 10 MG, Q8H
     Route: 048
  4. DICLOFENAC [Concomitant]
     Indication: BREAKTHROUGH PAIN
     Dosage: 75 MG, BID
     Route: 048
     Dates: start: 20120924
  5. CLONAZEPAM [Concomitant]
     Indication: ANXIETY
     Dosage: 1 MG, QID
     Route: 048

REACTIONS (4)
  - Migraine [Not Recovered/Not Resolved]
  - Pyrexia [Not Recovered/Not Resolved]
  - Hyperhidrosis [Not Recovered/Not Resolved]
  - Chills [Not Recovered/Not Resolved]
